FAERS Safety Report 8268712 (Version 2)
Quarter: 2012Q4

REPORT INFORMATION
  Report Type: 
  Country: JP (occurrence: US)
  Receive Date: 20111130
  Receipt Date: 20121004
  Transmission Date: 20130627
  Serious: Yes (Other)
  Sender: FDA-Public Use
  Company Number: US-JNJFOC-20100703607

PATIENT
  Age: 35 None
  Sex: Female

DRUGS (5)
  1. LEVAQUIN [Suspect]
     Indication: URINARY TRACT INFECTION
     Route: 048
  2. LEVAQUIN [Suspect]
     Indication: ARTHROPOD BITE
     Route: 048
  3. LEVAQUIN [Suspect]
     Indication: CYSTITIS
     Route: 048
  4. LEVAQUIN [Suspect]
     Indication: CYST
     Route: 048
  5. LEVAQUIN [Suspect]
     Indication: OROPHARYNGEAL PAIN
     Route: 048

REACTIONS (3)
  - Rotator cuff syndrome [Unknown]
  - Tendon rupture [Unknown]
  - Tendon rupture [Unknown]
